FAERS Safety Report 9149487 (Version 1)
Quarter: 2013Q1

REPORT INFORMATION
  Report Type: Spontaneous
  Country: US (occurrence: US)
  Receive Date: 20130308
  Receipt Date: 20130308
  Transmission Date: 20140127
  Serious: Yes (Hospitalization)
  Sender: FDA-Public Use
  Company Number: US-PFIZER INC-2013075157

PATIENT
  Sex: Female

DRUGS (2)
  1. REVATIO [Suspect]
     Indication: PULMONARY ARTERIAL HYPERTENSION
     Dosage: 40 MG, 3X/DAY
     Route: 048
  2. EPOPROSTENOL [Suspect]
     Dosage: UNK

REACTIONS (4)
  - Cardiac valve disease [Unknown]
  - Drug effect incomplete [Unknown]
  - Platelet count decreased [Unknown]
  - Off label use [Unknown]
